FAERS Safety Report 26000413 (Version 1)
Quarter: 2025Q4

REPORT INFORMATION
  Report Type: Spontaneous
  Country: US (occurrence: US)
  Receive Date: 20251105
  Receipt Date: 20251105
  Transmission Date: 20260117
  Serious: No
  Sender: ANI
  Company Number: US-ANIPHARMA-2025-US-037150

PATIENT
  Sex: Female

DRUGS (10)
  1. CORTICOTROPIN [Suspect]
     Active Substance: CORTICOTROPIN
     Indication: Rheumatoid arthritis
     Dosage: INJECT 80 UNITS (1ML) SUBCUTANEOUSLY TWO TIMES PER WEEK
     Route: 058
  2. HYDROXYCHLOROQUINE SULFATE [Concomitant]
     Active Substance: HYDROXYCHLOROQUINE SULFATE
  3. AMLODIPINE BESYLATE [Concomitant]
     Active Substance: AMLODIPINE BESYLATE
  4. HYDROCHLOROTHIAZIDE [Concomitant]
     Active Substance: HYDROCHLOROTHIAZIDE
  5. TYLENOL [Concomitant]
     Active Substance: ACETAMINOPHEN
  6. ACETAMINOPHEN\HYDROCODONE [Concomitant]
     Active Substance: ACETAMINOPHEN\HYDROCODONE
  7. ZYRTEC [Concomitant]
     Active Substance: CETIRIZINE HYDROCHLORIDE
  8. LEFLUNOMIDE [Concomitant]
     Active Substance: LEFLUNOMIDE
  9. DULOXETINE HYDROCHLORIDE [Concomitant]
     Active Substance: DULOXETINE HYDROCHLORIDE
  10. RUXIENCE [Concomitant]
     Active Substance: RITUXIMAB-PVVR

REACTIONS (3)
  - Hyperhidrosis [Not Recovered/Not Resolved]
  - Vertigo [Not Recovered/Not Resolved]
  - Abnormal weight gain [Not Recovered/Not Resolved]
